FAERS Safety Report 6473500-0 (Version None)
Quarter: 2009Q4

REPORT INFORMATION
  Report Type: 
  Country: None (occurrence: None)
  Receive Date: 20091204
  Receipt Date: 20081106
  Transmission Date: 20100525
  Serious: Yes (Other)
  Sender: FDA-Public Use
  Company Number: US-ELI_LILLY_AND_COMPANY-US200811001244

PATIENT
  Age: 38 Year
  Sex: Male

DRUGS (11)
  1. CYMBALTA [Suspect]
     Indication: BACK PAIN
     Dosage: 60 MG, UNK
  2. AMBIEN [Concomitant]
  3. ALBUTEROL [Concomitant]
  4. AMIODARONE HCL [Concomitant]
  5. COUMADIN [Concomitant]
  6. LASIX [Concomitant]
  7. KADIAN [Concomitant]
  8. MUCINEX [Concomitant]
  9. NORVASC [Concomitant]
  10. ZANAFLEX [Concomitant]
  11. TOPAMAX [Concomitant]

REACTIONS (1)
  - BLINDNESS TRANSIENT [None]
